FAERS Safety Report 18480534 (Version 8)
Quarter: 2021Q4

REPORT INFORMATION
  Report Type: Spontaneous
  Country: US (occurrence: US)
  Receive Date: 20201109
  Receipt Date: 20211116
  Transmission Date: 20220303
  Serious: Yes (Other)
  Sender: FDA-Public Use
  Company Number: US-PFIZER INC-2020432001

PATIENT
  Age: 71 Year
  Sex: Female

DRUGS (1)
  1. XELJANZ XR [Suspect]
     Active Substance: TOFACITINIB CITRATE
     Dosage: 11 MG, 1X/DAY
     Route: 048

REACTIONS (7)
  - Arterial occlusive disease [Unknown]
  - Dementia [Unknown]
  - Arteriosclerosis coronary artery [Unknown]
  - Tongue movement disturbance [Unknown]
  - Hypoacusis [Unknown]
  - Speech disorder [Unknown]
  - Product prescribing error [Unknown]
